FAERS Safety Report 8333657-3 (Version None)
Quarter: 2012Q1

REPORT INFORMATION
  Report Type: 
  Country: None (occurrence: None)
  Receive Date: 20120328
  Receipt Date: 20100706
  Transmission Date: 20120608
  Serious: Yes (Other)
  Sender: FDA-Public Use
  Company Number: `PHHY2010US44261

PATIENT
  Age: 81 Year
  Sex: Male

DRUGS (2)
  1. TOPROL-XL [Suspect]
  2. VALTURNA [Suspect]
     Dosage: 150/160 MG ; 300/320 MG ; 150/160 MG, ORAL
     Route: 048

REACTIONS (2)
  - ASTHENIA [None]
  - BLOOD PRESSURE INADEQUATELY CONTROLLED [None]
